FAERS Safety Report 21060829 (Version 1)
Quarter: 2022Q3

REPORT INFORMATION
  Report Type: Spontaneous
  Country: FR (occurrence: FR)
  Receive Date: 20220709
  Receipt Date: 20220709
  Transmission Date: 20221027
  Serious: Yes (Hospitalization)
  Sender: FDA-Public Use
  Company Number: None

PATIENT
  Age: 68 Year
  Sex: Female
  Weight: 88 kg

DRUGS (7)
  1. PANTOPRAZOLE [Suspect]
     Active Substance: PANTOPRAZOLE
     Indication: Product used for unknown indication
     Dosage: THERAPY START DATE : ASKU,UNIT DOSE 40 MG, FREQUENCY TIME 1 DAYS,
     Route: 048
     Dates: end: 20220525
  2. ALDACTAZINE [Suspect]
     Active Substance: ALTHIAZIDE\SPIRONOLACTONE
     Indication: Hypertension
     Dosage: ALDACTAZINE, SCORED FILM-COATED TABLET,THERAPY START DATE : ASKU,UNIT DOSE 1DF, FREQUENCY TIME 1 DAY
     Route: 048
     Dates: end: 20220525
  3. COVERAM [Concomitant]
     Active Substance: AMLODIPINE\PERINDOPRIL
     Indication: Product used for unknown indication
     Dosage: COVERAM 10MG/10MG TABLETS,THERAPY START DATE : ASKU,UNIT DOSE 1DF, FREQUENCY TIME 1 DAYS
     Route: 048
     Dates: end: 20220525
  4. ACEBUTOLOL HYDROCHLORIDE [Concomitant]
     Active Substance: ACEBUTOLOL HYDROCHLORIDE
     Indication: Product used for unknown indication
     Dosage: UNIT DOSE 800 MG, FREQUENCY TIME 1 DAYS,THERAPY START DATE : ASKU
     Route: 048
     Dates: end: 20220525
  5. SOLUPRED [Concomitant]
     Indication: Dyspnoea
     Dosage: DURATION 4 DAYS
     Route: 048
     Dates: start: 20220519, end: 20220523
  6. NAPROXEN [Concomitant]
     Active Substance: NAPROXEN
     Indication: Product used for unknown indication
     Dosage: UNIT DOSE 1 DF, FREQUENCY TIME 1 AS REQUIRED, THERAPY START DATE AND END DATE : ASKU
     Route: 048
  7. FENOFIBRATE [Concomitant]
     Active Substance: FENOFIBRATE
     Indication: Product used for unknown indication
     Dosage: UNIT DOSE 160 MG, FREQUENCY TIME 1 DAYS,THERAPY START DATE : ASKU
     Route: 048
     Dates: end: 20220525

REACTIONS (2)
  - Hypokalaemia [Recovered/Resolved]
  - Hyponatraemia [Recovered/Resolved]

NARRATIVE: CASE EVENT DATE: 20220525
